FAERS Safety Report 18102399 (Version 1)
Quarter: 2020Q3

REPORT INFORMATION
  Report Type: Spontaneous
  Country: JP (occurrence: JP)
  Receive Date: 20200803
  Receipt Date: 20200803
  Transmission Date: 20201103
  Serious: Yes (Other)
  Sender: FDA-Public Use
  Company Number: JP-009507513-1812JPN000300J

PATIENT
  Age: 83 Year
  Sex: Female

DRUGS (1)
  1. KEYTRUDA [Suspect]
     Active Substance: PEMBROLIZUMAB
     Indication: TRANSITIONAL CELL CARCINOMA
     Dosage: 200 MILLIGRAM, Q3W
     Route: 041
     Dates: start: 20181120, end: 20181120

REACTIONS (2)
  - Pyrexia [Not Recovered/Not Resolved]
  - Immune-mediated arthritis [Recovering/Resolving]

NARRATIVE: CASE EVENT DATE: 20181120
